FAERS Safety Report 19605535 (Version 1)
Quarter: 2021Q3

REPORT INFORMATION
  Report Type: Spontaneous
  Country: RO (occurrence: RO)
  Receive Date: 20210723
  Receipt Date: 20210723
  Transmission Date: 20211014
  Serious: Yes (Hospitalization)
  Sender: FDA-Public Use
  Company Number: RO-OTSUKA-2018_010117

PATIENT
  Age: 39 Year
  Sex: Female

DRUGS (5)
  1. ARIPIPRAZOLE. [Suspect]
     Active Substance: ARIPIPRAZOLE
     Indication: SCHIZOPHRENIA
     Dosage: 5 MG, QD
     Route: 065
     Dates: start: 201505
  2. ARIPIPRAZOLE. [Suspect]
     Active Substance: ARIPIPRAZOLE
     Dosage: 30 MG, QD
     Route: 065
     Dates: start: 201608
  3. RISPOLEPT CONSTA [Suspect]
     Active Substance: RISPERIDONE
     Dosage: 37.5 MG, (2 WEEK)
     Route: 065
     Dates: start: 201411
  4. HALOPERIDOL. [Suspect]
     Active Substance: HALOPERIDOL
     Indication: SCHIZOPHRENIA
     Dosage: 6 MG, QD
     Route: 065
     Dates: start: 201608
  5. RISPOLEPT CONSTA [Suspect]
     Active Substance: RISPERIDONE
     Indication: SCHIZOPHRENIA
     Dosage: 37.5 MG, UNK
     Route: 065

REACTIONS (5)
  - Akathisia [Unknown]
  - Psychotic disorder [Recovering/Resolving]
  - Inappropriate schedule of product administration [Unknown]
  - Amenorrhoea [Unknown]
  - Incorrect dose administered [Unknown]

NARRATIVE: CASE EVENT DATE: 201503
